FAERS Safety Report 10862314 (Version 5)
Quarter: 2016Q3

REPORT INFORMATION
  Report Type: Report from Study
  Country: BE (occurrence: BE)
  Receive Date: 20150224
  Receipt Date: 20160701
  Transmission Date: 20161109
  Serious: Yes (Other)
  Sender: FDA-Public Use
  Company Number: BE-ABBVIE-14P-013-1285121-00

PATIENT
  Sex: Male

DRUGS (13)
  1. DUODOPA [Suspect]
     Active Substance: CARBIDOPA\LEVODOPA
     Dosage: AM DOSE= 1.2ML, CONTIN DOSE= 1.9ML/H DURING 16HRS, EXTRA DOSE=0.7ML
     Route: 050
     Dates: start: 20150216, end: 20150305
  2. DUODOPA [Suspect]
     Active Substance: CARBIDOPA\LEVODOPA
     Dosage: AM DOSE=1.2ML, CD=2.5ML/H FOR 16HRS, ED=0.7ML
     Route: 050
     Dates: start: 20140703, end: 20141222
  3. DUODOPA [Suspect]
     Active Substance: CARBIDOPA\LEVODOPA
     Dosage: DOSAGE CONTINUOUSLY MONITORED AND ADJUSTED
     Route: 050
     Dates: start: 20080601, end: 20140703
  4. DUODOPA [Suspect]
     Active Substance: CARBIDOPA\LEVODOPA
     Dosage: AM DOSE=1.2ML, CD=2.5ML/H FOR 16HRS AND ED=0.7ML
     Route: 050
     Dates: start: 20141222, end: 20141223
  5. DUODOPA [Suspect]
     Active Substance: CARBIDOPA\LEVODOPA
     Dosage: AM DOSE=1.2ML, CD=2.3ML/H FOR 16HRS AND ED=0.7ML
     Route: 050
     Dates: start: 20141223, end: 20150216
  6. DUODOPA [Suspect]
     Active Substance: CARBIDOPA\LEVODOPA
     Dosage: AM DOSE=3ML, CD=1.7ML/H FOR 16HRS, ED=0.7ML
     Route: 050
     Dates: start: 2016
  7. DUODOPA [Suspect]
     Active Substance: CARBIDOPA\LEVODOPA
     Dosage: AM DOSE=4ML, CD=3.3ML/H FOR 16HRS AND ED=0.8ML
     Route: 050
     Dates: start: 20080401, end: 20080601
  8. DUODOPA [Suspect]
     Active Substance: CARBIDOPA\LEVODOPA
     Dosage: AM: 0 ML CD: 1.9 ML/H DURING 16 HRS ED: 0.7 ML
     Route: 050
     Dates: start: 20160309
  9. DUODOPA [Suspect]
     Active Substance: CARBIDOPA\LEVODOPA
     Dosage: DOSAGE CONTINOUSLY MONITORED AND ADJUSTED
     Route: 050
     Dates: start: 20150305
  10. DUODOPA [Suspect]
     Active Substance: CARBIDOPA\LEVODOPA
     Dosage: AM: 0 ML CD: 2 ML/H DURING 16 HRS ED: 0.7 ML
     Route: 050
     Dates: start: 20160218, end: 20160309
  11. DUODOPA [Suspect]
     Active Substance: CARBIDOPA\LEVODOPA
     Dosage: AM DOSE=3ML, CD=1.9ML/H FOR 16HRS AND ED=0.7ML
     Route: 050
     Dates: start: 2016, end: 2016
  12. DUODOPA [Suspect]
     Active Substance: CARBIDOPA\LEVODOPA
     Dosage: AM DOSE=3ML, CD=1.8ML/H FOR 16HRS AND ED=0.7ML
     Route: 050
     Dates: start: 2016, end: 2016
  13. DUODOPA [Suspect]
     Active Substance: CARBIDOPA\LEVODOPA
     Indication: PARKINSON^S DISEASE
     Route: 050
     Dates: start: 20080303, end: 20080401

REACTIONS (11)
  - Parkinson^s disease [Unknown]
  - Confusional state [Not Recovered/Not Resolved]
  - Sleep disorder [Recovered/Resolved]
  - Mobility decreased [Unknown]
  - Decreased appetite [Unknown]
  - Dyskinesia [Recovering/Resolving]
  - Memory impairment [Unknown]
  - Cognitive disorder [Unknown]
  - Mantle cell lymphoma [Unknown]
  - Mantle cell lymphoma recurrent [Unknown]
  - Weight decreased [Unknown]

NARRATIVE: CASE EVENT DATE: 2011
